FAERS Safety Report 23291762 (Version 1)
Quarter: 2023Q4

REPORT INFORMATION
  Report Type: Spontaneous
  Country: US (occurrence: US)
  Receive Date: 20231213
  Receipt Date: 20231213
  Transmission Date: 20240109
  Serious: Yes (Hospitalization, Other)
  Sender: FDA-Public Use
  Company Number: US-MLMSERVICE-20231122-4679911-1

PATIENT
  Age: 19 Year
  Sex: Female

DRUGS (1)
  1. PREDNISONE [Suspect]
     Active Substance: PREDNISONE
     Indication: Dermatitis atopic
     Dosage: UNKNOWN (HIGH DOSES)
     Route: 065

REACTIONS (1)
  - Pulmonary embolism [Recovering/Resolving]
